FAERS Safety Report 11272703 (Version 1)
Quarter: 2015Q3

REPORT INFORMATION
  Report Type: Spontaneous
  Country: US (occurrence: None)
  Receive Date: 20150714
  Receipt Date: 20150714
  Transmission Date: 20151125
  Serious: No
  Sender: FDA-Public Use
  Company Number: None

PATIENT
  Age: 7 Month
  Sex: Female
  Weight: 8.16 kg

DRUGS (1)
  1. MULTI-VIT WITH FLUORIDE [Suspect]
     Active Substance: .ALPHA.-TOCOPHEROL ACETATE, DL-\ASCORBIC ACID\CHOLECALCIFEROL\CYANOCOBALAMIN\NIACINAMIDE\PYRIDOXINE HYDROCHLORIDE\RIBOFLAVIN\SODIUM FLUORIDE\THIAMINE HYDROCHLORIDE\VITAMIN A PALMITATE
     Route: 048
     Dates: start: 20150702, end: 20150704

REACTIONS (3)
  - Product taste abnormal [None]
  - Product quality issue [None]
  - Vomiting [None]

NARRATIVE: CASE EVENT DATE: 20150702
